FAERS Safety Report 18381216 (Version 1)
Quarter: 2020Q4

REPORT INFORMATION
  Report Type: Other
  Country: KR (occurrence: KR)
  Receive Date: 20201014
  Receipt Date: 20201014
  Transmission Date: 20210114
  Serious: Yes (Life-Threatening, Other)
  Sender: FDA-Public Use
  Company Number: KR-ROCHE-2693070

PATIENT
  Age: 69 Year
  Sex: Female

DRUGS (2)
  1. ACTILYSE [Suspect]
     Active Substance: ALTEPLASE
     Indication: VASCULAR OCCLUSION
  2. ACTILYSE [Suspect]
     Active Substance: ALTEPLASE
     Indication: HEMIPARESIS
     Route: 042

REACTIONS (5)
  - Loss of consciousness [Unknown]
  - Carotid artery dissection [Recovered/Resolved]
  - Chest pain [Unknown]
  - Aortic dissection [Recovered/Resolved]
  - Abdominal pain [Unknown]
